FAERS Safety Report 25557165 (Version 2)
Quarter: 2025Q3

REPORT INFORMATION
  Report Type: Spontaneous
  Country: EU (occurrence: EU)
  Receive Date: 20250715
  Receipt Date: 20250820
  Transmission Date: 20251020
  Serious: No
  Sender: TAKEDA
  Company Number: EU-TAKEDA-2025TUS061210

PATIENT
  Sex: Male

DRUGS (2)
  1. ENTYVIO [Suspect]
     Active Substance: VEDOLIZUMAB
     Indication: Product used for unknown indication
  2. ENTYVIO [Suspect]
     Active Substance: VEDOLIZUMAB

REACTIONS (4)
  - No adverse event [Unknown]
  - Device defective [Unknown]
  - Device malfunction [Unknown]
  - Product dose omission issue [Unknown]
